FAERS Safety Report 13428317 (Version 1)
Quarter: 2017Q2

REPORT INFORMATION
  Report Type: Spontaneous
  Country: GB (occurrence: GB)
  Receive Date: 20170411
  Receipt Date: 20170411
  Transmission Date: 20170830
  Serious: Yes (Disabling)
  Sender: FDA-Public Use
  Company Number: GB-LINDE GAS NORTH AMERICA LLC, LINDE GAS PUERTO RICO INC.-GB-LHC-2017086

PATIENT
  Age: 19 Year
  Sex: Male

DRUGS (1)
  1. NITROUS OXIDE (GENERIC) [Suspect]
     Active Substance: NITROUS OXIDE
     Indication: SUBSTANCE USE
     Dates: start: 20170216

REACTIONS (1)
  - Acute polyneuropathy [Unknown]

NARRATIVE: CASE EVENT DATE: 20170216
